FAERS Safety Report 9304574 (Version 2)
Quarter: 2013Q3

REPORT INFORMATION
  Report Type: Report from Study
  Country: BR (occurrence: BR)
  Receive Date: 20130523
  Receipt Date: 20130806
  Transmission Date: 20140515
  Serious: Yes (Hospitalization)
  Sender: FDA-Public Use
  Company Number: BR-ROCHE-1168831

PATIENT
  Age: 62 Year
  Sex: Male
  Weight: 54 kg

DRUGS (4)
  1. INTERFERON ALFA-2A [Suspect]
     Indication: HEPATITIS C
     Route: 065
     Dates: start: 201209, end: 201212
  2. FOLIC ACID [Concomitant]
     Route: 065
  3. VITAMIN B COMPLEX [Concomitant]
     Route: 065
  4. NIFEDIPINE [Concomitant]
     Route: 065

REACTIONS (5)
  - Pyrexia [Recovered/Resolved]
  - Mental disorder [Recovering/Resolving]
  - Fatigue [Recovering/Resolving]
  - Pain in extremity [Not Recovered/Not Resolved]
  - Asthenia [Not Recovered/Not Resolved]
